FAERS Safety Report 21366475 (Version 1)
Quarter: 2022Q3

REPORT INFORMATION
  Report Type: Report from Study
  Country: US (occurrence: US)
  Receive Date: 20220923
  Receipt Date: 20220923
  Transmission Date: 20221027
  Serious: No
  Sender: FDA-Public Use
  Company Number: US-ABBVIE-4127804

PATIENT
  Sex: Male

DRUGS (4)
  1. HUMIRA [Suspect]
     Active Substance: ADALIMUMAB
     Indication: Product used for unknown indication
     Route: 058
  2. Pfizer/BioNTech [Concomitant]
     Indication: COVID-19 immunisation
     Dosage: ONCE ?1ST DOSE
     Route: 030
     Dates: start: 20210319, end: 20210319
  3. Pfizer/BioNTech [Concomitant]
     Indication: COVID-19 immunisation
     Dosage: ONCE ?2ND DOSE
     Route: 030
     Dates: start: 20210416, end: 20210416
  4. Pfizer/BioNTech [Concomitant]
     Indication: COVID-19 immunisation
     Dosage: ONCE ?3RD DOSE
     Route: 030
     Dates: start: 20211231, end: 20211231

REACTIONS (1)
  - Arthralgia [Not Recovered/Not Resolved]
